FAERS Safety Report 5460235-6 (Version None)
Quarter: 2007Q3

REPORT INFORMATION
  Report Type: 
  Country: None (occurrence: None)
  Receive Date: 20070919
  Receipt Date: 20070607
  Transmission Date: 20080115
  Serious: No
  Sender: FDA-Public Use
  Company Number: US-ASTRAZENECA-2007UW13713

PATIENT
  Age: 72 Year
  Sex: Female

DRUGS (4)
  1. SEROQUEL [Suspect]
     Indication: SLEEP DISORDER
     Dosage: 1-1 1/2 50 MG PO DAILY
     Dates: start: 20070501
  2. SEROQUEL [Suspect]
     Indication: FEELING ABNORMAL
     Dosage: 1-1 1/2 50 MG PO DAILY
     Dates: start: 20070501
  3. LEXAPRO [Suspect]
     Dates: start: 20070501
  4. DILAUDID [Concomitant]

REACTIONS (4)
  - ANXIETY [None]
  - ASTHENIA [None]
  - FEELING COLD [None]
  - SLEEP DISORDER [None]
